FAERS Safety Report 16912346 (Version 2)
Quarter: 2022Q1

REPORT INFORMATION
  Report Type: Other
  Country: FR (occurrence: FR)
  Receive Date: 20191014
  Receipt Date: 20220309
  Transmission Date: 20220423
  Serious: Yes (Death, Other)
  Sender: FDA-Public Use
  Company Number: None

PATIENT
  Age: 84 Year
  Sex: Female

DRUGS (14)
  1. PAROXETINE HYDROCHLORIDE [Suspect]
     Active Substance: PAROXETINE HYDROCHLORIDE
     Indication: Dementia of the Alzheimer^s type, uncomplicated
     Dosage: 10 MG, QD
     Route: 048
     Dates: start: 201803
  2. OXAZEPAM [Suspect]
     Active Substance: OXAZEPAM
     Indication: Dementia of the Alzheimer^s type, uncomplicated
     Dosage: 10 MG, QD
     Route: 048
     Dates: start: 201804
  3. RISPERDAL [Suspect]
     Active Substance: RISPERIDONE
     Indication: Dementia of the Alzheimer^s type, uncomplicated
     Dosage: 0.25 MG, Q.AM
     Route: 048
     Dates: start: 201802
  4. RISPERDAL [Suspect]
     Active Substance: RISPERIDONE
     Dosage: 0.25 MG, Q. AF
     Route: 048
     Dates: start: 201802
  5. RISPERDAL [Suspect]
     Active Substance: RISPERIDONE
     Dosage: 0.5 MG, Q.H.S.
     Route: 048
     Dates: start: 201802
  6. VALPROIC ACID [Suspect]
     Active Substance: VALPROIC ACID
     Indication: Dementia of the Alzheimer^s type, uncomplicated
     Dosage: 3 ML, QD
     Route: 048
     Dates: start: 201711
  7. SODIUM FEREDETATE [Suspect]
     Active Substance: SODIUM FEREDETATE
     Indication: Product used for unknown indication
     Dosage: 10 ML, QD
     Route: 048
     Dates: start: 201906
  8. DOLIPRANE [Concomitant]
     Active Substance: ACETAMINOPHEN
     Indication: Product used for unknown indication
     Dosage: UNK
     Route: 065
  9. FUROSEMIDE [Concomitant]
     Active Substance: FUROSEMIDE
     Indication: Product used for unknown indication
     Dosage: UNK
     Route: 065
  10. NEBIVOLOL [Concomitant]
     Active Substance: NEBIVOLOL
     Indication: Product used for unknown indication
     Dosage: UNK
     Route: 065
  11. NEBIVOLOL [Concomitant]
     Active Substance: NEBIVOLOL
     Dosage: UNK
     Route: 065
  12. LOPERAMIDE OXIDE [Concomitant]
     Active Substance: LOPERAMIDE OXIDE
     Indication: Product used for unknown indication
     Dosage: UNK
     Route: 065
  13. LOPERAMIDE OXIDE [Concomitant]
     Active Substance: LOPERAMIDE OXIDE
     Dosage: UNK
     Route: 065
  14. POLYETHYLENE GLYCOL 4000 [Concomitant]
     Active Substance: POLYETHYLENE GLYCOL 4000
     Indication: Product used for unknown indication
     Dosage: UNK
     Route: 065

REACTIONS (1)
  - Intestinal obstruction [Fatal]

NARRATIVE: CASE EVENT DATE: 20190630
